FAERS Safety Report 13741717 (Version 6)
Quarter: 2019Q3

REPORT INFORMATION
  Report Type: Spontaneous
  Country: US (occurrence: US)
  Receive Date: 20170711
  Receipt Date: 20190826
  Transmission Date: 20191004
  Serious: Yes (Other)
  Sender: FDA-Public Use
  Company Number: US-PFIZER INC-2017298473

PATIENT
  Age: 65 Year
  Sex: Female
  Weight: 67 kg

DRUGS (4)
  1. IBRANCE [Suspect]
     Active Substance: PALBOCICLIB
     Indication: BREAST CANCER METASTATIC
     Dosage: 75 MG, CYCLIC, (DAILY 2 WEEKS ON, 2 WEEKS OFF)/(14 DAY ON AND 14 DAYS OFF)
     Dates: start: 201511
  2. LETROZOLE. [Concomitant]
     Active Substance: LETROZOLE
     Dosage: 2.5 MG, DAILY
  3. XGEVA [Concomitant]
     Active Substance: DENOSUMAB
     Dosage: UNK UNK, EVERY 3 MONTHS
  4. LETROZOLE. [Concomitant]
     Active Substance: LETROZOLE
     Dosage: 150 MG, DAILY

REACTIONS (7)
  - Stomatitis [Recovered/Resolved]
  - Pain [Unknown]
  - Arthralgia [Unknown]
  - Red blood cell count decreased [Not Recovered/Not Resolved]
  - Bone pain [Unknown]
  - White blood cell count decreased [Not Recovered/Not Resolved]
  - Neutropenia [Not Recovered/Not Resolved]
